FAERS Safety Report 7211775-0 (Version None)
Quarter: 2011Q1

REPORT INFORMATION
  Report Type: 
  Country: None (occurrence: None)
  Receive Date: 20110105
  Receipt Date: 20101223
  Transmission Date: 20110831
  Serious: Yes (Other)
  Sender: FDA-Public Use
  Company Number: US-WATSON-2010-16604

PATIENT
  Age: 32 Year
  Sex: Female

DRUGS (1)
  1. PROGESTERONE IN OIL INJ [Suspect]
     Indication: IN VITRO FERTILISATION
     Dosage: UNK

REACTIONS (2)
  - ANGIOEDEMA [None]
  - URTICARIA [None]
